FAERS Safety Report 22068285 (Version 4)
Quarter: 2023Q2

REPORT INFORMATION
  Report Type: Spontaneous
  Country: CZ (occurrence: CZ)
  Receive Date: 20230307
  Receipt Date: 20230530
  Transmission Date: 20230722
  Serious: Yes (Death, Other)
  Sender: FDA-Public Use
  Company Number: CZ-CELLTRION INC.-2023CZ004574

PATIENT

DRUGS (19)
  1. RITUXIMAB [Suspect]
     Active Substance: RITUXIMAB
     Indication: Chronic myeloid leukaemia
     Dosage: DAY 1 OF CHEMOTHERAPY
  2. RITUXIMAB [Suspect]
     Active Substance: RITUXIMAB
     Dosage: DAY 2 OF CHEMOTHERAPY
  3. RITUXIMAB [Suspect]
     Active Substance: RITUXIMAB
     Dosage: DAY 3 OF CHEMOTHERAPY
  4. RITUXIMAB [Suspect]
     Active Substance: RITUXIMAB
     Dosage: 100 MG DAY 1, 200 MG DAY 2, 400 MG DAY 3 OF CHEMOTHERAPY
     Dates: start: 2014
  5. VINCRISTINE [Suspect]
     Active Substance: VINCRISTINE
     Indication: Chronic myeloid leukaemia
     Dosage: 2 MG, QD DAYS 7 AND 14 OF CHEMOTHERAPY
  6. VINCRISTINE [Suspect]
     Active Substance: VINCRISTINE
     Dosage: 2 MG, QD DAYS 7 AND 14 OF CHEMOTHERAPY
     Dates: start: 2014
  7. ASPARAGINASE [Suspect]
     Active Substance: ASPARAGINASE
     Indication: Chronic myeloid leukaemia
     Dosage: 9000 IE; DAYS 17 AND 25 OF CHEMOTHERAPYCLIC
     Dates: start: 2014
  8. INTERFERON ALFA-2A [Suspect]
     Active Substance: INTERFERON ALFA-2A
     Indication: Chronic myeloid leukaemia
     Dosage: 3 MIU INTERVAL 0.5 WEEK
     Dates: start: 201503
  9. CYTARABINE [Suspect]
     Active Substance: CYTARABINE
     Indication: Nervous system disorder prophylaxis
     Dosage: UNK
     Route: 037
  10. CYTARABINE [Suspect]
     Active Substance: CYTARABINE
     Dosage: 2ND, 31ST, AND 33RD DAYS OF CHEMOTHERAPY
     Route: 037
     Dates: start: 2014
  11. DAUNORUBICIN HYDROCHLORIDE [Suspect]
     Active Substance: DAUNORUBICIN HYDROCHLORIDE
     Indication: Chronic myeloid leukaemia
     Dosage: 80 MG, QD DAYS 7-8 AND 14-15 OF CHEMOTHERAPY
  12. DAUNORUBICIN HYDROCHLORIDE [Suspect]
     Active Substance: DAUNORUBICIN HYDROCHLORIDE
     Dosage: 80 MG, QD DAYS 7-8 AND 14-15 OF CHEMOTHERAPY
     Dates: start: 2014
  13. METHOTREXATE [Suspect]
     Active Substance: METHOTREXATE
     Indication: Nervous system disorder prophylaxis
     Dosage: 2ND, 31ST, AND 33RD DAYS OF CHEMOTHERAPY
     Route: 037
     Dates: start: 2014
  14. IMATINIB [Suspect]
     Active Substance: IMATINIB
     Indication: Chronic myeloid leukaemia
     Dosage: 400 MG
     Dates: start: 2014
  15. DEXAMETHASONE [Suspect]
     Active Substance: DEXAMETHASONE
     Indication: Nervous system disorder prophylaxis
     Dosage: 2ND, 31ST, AND 33RD DAYS OF CHEMOTHERAPY
     Route: 037
     Dates: start: 2014
  16. CYCLOPHOSPHAMIDE [Suspect]
     Active Substance: CYCLOPHOSPHAMIDE
     Indication: Chronic myeloid leukaemia
     Dosage: 360 MG, QD DAYS 4-6 OF CHEMOTHERAPY
  17. CYCLOPHOSPHAMIDE [Suspect]
     Active Substance: CYCLOPHOSPHAMIDE
     Dosage: 360 MG, QD DAYS 4-6 OF CHEMOTHERAPY
     Dates: start: 2014
  18. GRANULOCYTE COLONY-STIMULATING FACTOR NOS [Concomitant]
     Active Substance: GRANULOCYTE COLONY-STIMULATING FACTOR NOS
     Indication: Neutropenia
     Dosage: 48 MICROGRAM 13 TIMES OVER EIGHT WEEKS
  19. DASATINIB [Concomitant]
     Active Substance: DASATINIB
     Indication: Chronic myeloid leukaemia
     Dosage: 40 MG, QD FIVE TIMES PER WEEK.

REACTIONS (11)
  - Pneumonia influenzal [Fatal]
  - Ileus [Unknown]
  - Nephrotic syndrome [Unknown]
  - Pancreatitis acute [Unknown]
  - Liver disorder [Unknown]
  - Mucosal inflammation [Unknown]
  - Cerebral toxoplasmosis [Recovering/Resolving]
  - Pneumonia fungal [Unknown]
  - Renal failure [Unknown]
  - Weight decreased [Unknown]
  - Intentional product use issue [Unknown]
